FAERS Safety Report 4308691-0 (Version None)
Quarter: 2004Q1

REPORT INFORMATION
  Report Type: 
  Country: None (occurrence: None)
  Receive Date: 20040226
  Receipt Date: 20040211
  Transmission Date: 20041129
  Serious: Yes (Death, Life-Threatening, Hospitalization)
  Sender: FDA-Public Use
  Company Number: 235438

PATIENT
  Age: 16 Year
  Sex: Female

DRUGS (1)
  1. NOVOLIN GE NPH (INSULIN HUMAN) SUSPENSION FOR INJECTION [Suspect]
     Indication: DIABETIC KETOACIDOSIS
     Dosage: 0.8 IU/KG/DAY

REACTIONS (11)
  - CARDIAC ARREST [None]
  - CARDIOMEGALY [None]
  - CONGESTIVE CARDIOMYOPATHY [None]
  - DIABETIC KETOACIDOSIS [None]
  - EJECTION FRACTION DECREASED [None]
  - MULTI-ORGAN FAILURE [None]
  - OEDEMA PERIPHERAL [None]
  - PLEURAL EFFUSION [None]
  - RESPIRATORY DISTRESS [None]
  - VENTRICULAR DYSFUNCTION [None]
  - VENTRICULAR TACHYCARDIA [None]
